FAERS Safety Report 8479122 (Version 4)
Quarter: 2013Q2

REPORT INFORMATION
  Report Type: Report from Study
  Country: US (occurrence: US)
  Receive Date: 20120327
  Receipt Date: 20130627
  Transmission Date: 20140414
  Serious: Yes (Hospitalization)
  Sender: FDA-Public Use
  Company Number: PHHO2012US000875

PATIENT
  Age: 53 Year
  Sex: Female
  Weight: 136.5 kg

DRUGS (11)
  1. ILARIS [Suspect]
     Indication: GOUTY ARTHRITIS
     Dosage: 150 MG, UNK
     Route: 058
     Dates: start: 20111101
  2. ALLOPURINOL [Concomitant]
  3. XANAX [Concomitant]
  4. AUGMENTIN [Concomitant]
  5. FLEXERIL [Concomitant]
  6. LASIX [Concomitant]
  7. LORTAB [Concomitant]
  8. MOBIC [Concomitant]
  9. LYRICA [Concomitant]
  10. DIOVAN [Concomitant]
  11. STEROIDS NOS [Concomitant]

REACTIONS (2)
  - Headache [Recovered/Resolved]
  - Viral infection [Recovered/Resolved]
